FAERS Safety Report 20786634 (Version 2)
Quarter: 2022Q2

REPORT INFORMATION
  Report Type: Spontaneous
  Country: BG (occurrence: BG)
  Receive Date: 20220505
  Receipt Date: 20220526
  Transmission Date: 20220721
  Serious: Yes (Life-Threatening)
  Sender: FDA-Public Use
  Company Number: BG-BDA-23397

PATIENT
  Age: 30 Year
  Sex: Female
  Weight: 60 kg

DRUGS (1)
  1. CIPROFLOXACIN [Suspect]
     Active Substance: CIPROFLOXACIN
     Indication: Enterococcal infection
     Dosage: 500 MILLIGRAM, BID
     Route: 048
     Dates: start: 20211108, end: 20211109

REACTIONS (2)
  - Rash erythematous [Recovered/Resolved]
  - Swelling face [Recovered/Resolved]
